FAERS Safety Report 24205128 (Version 1)
Quarter: 2024Q3

REPORT INFORMATION
  Report Type: Spontaneous
  Country: US (occurrence: None)
  Receive Date: 20240812
  Receipt Date: 20240812
  Transmission Date: 20241016
  Serious: Yes (Hospitalization)
  Sender: Public
  Company Number: None

PATIENT
  Sex: Female

DRUGS (5)
  1. OPSUMIT [Suspect]
     Active Substance: MACITENTAN
     Indication: Pulmonary arterial hypertension
     Dosage: FREQUENCY : DAILY;?
     Route: 048
     Dates: start: 201906
  2. SOD CHLORSDV ,:SOML/FTV) [Concomitant]
  3. FLOLAN SDV [Concomitant]
  4. VELETRI SDV [Concomitant]
  5. DEMPAS [Concomitant]

REACTIONS (1)
  - Catheter site pain [None]
